FAERS Safety Report 5918580-3 (Version None)
Quarter: 2008Q4

REPORT INFORMATION
  Report Type: 
  Country: None (occurrence: None)
  Receive Date: 20081014
  Receipt Date: 20081014
  Transmission Date: 20090506
  Serious: Yes (Hospitalization)
  Sender: FDA-Public Use
  Company Number: None

PATIENT
  Age: 77 Year
  Sex: Male

DRUGS (5)
  1. OXALIPLATIN [Suspect]
     Indication: OESOPHAGEAL CARCINOMA
     Dosage: WEEKLY IV
     Route: 042
     Dates: start: 20080827
  2. CAPECITABINE (200 MG/M2) [Suspect]
     Indication: OESOPHAGEAL CARCINOMA
     Dosage: EVERYDAY PO
     Route: 048
     Dates: start: 20080829
  3. ATIVAN [Concomitant]
  4. ZOFRAN [Concomitant]
  5. PROTONIX [Concomitant]

REACTIONS (7)
  - ASTHENIA [None]
  - CONSTIPATION [None]
  - DIZZINESS [None]
  - FATIGUE [None]
  - HAEMATEMESIS [None]
  - HYPERHIDROSIS [None]
  - NAUSEA [None]
